FAERS Safety Report 7884207-7 (Version None)
Quarter: 2011Q4

REPORT INFORMATION
  Report Type: 
  Country: None (occurrence: None)
  Receive Date: 20111102
  Receipt Date: 20111027
  Transmission Date: 20120403
  Serious: Yes (Life-Threatening, Hospitalization)
  Sender: FDA-Public Use
  Company Number: NZ-ROXANE LABORATORIES, INC.-2011-RO-01549RO

PATIENT
  Age: 19 Year
  Sex: Male

DRUGS (2)
  1. CYCLOPHOSPHAMIDE [Suspect]
     Indication: PROPHYLAXIS AGAINST TRANSPLANT REJECTION
  2. MORPHINE [Suspect]
     Indication: PAIN

REACTIONS (5)
  - BLADDER SPASM [None]
  - PAIN [None]
  - CYSTITIS HAEMORRHAGIC [None]
  - PNEUMONIA [None]
  - HAEMATURIA [None]
